FAERS Safety Report 12253474 (Version 1)
Quarter: 2016Q2

REPORT INFORMATION
  Report Type: Spontaneous
  Country: FR (occurrence: FR)
  Receive Date: 20160411
  Receipt Date: 20160411
  Transmission Date: 20160815
  Serious: Yes (Hospitalization)
  Sender: FDA-Public Use
  Company Number: FR-SA-2016SA069108

PATIENT
  Age: 70 Year
  Sex: Female

DRUGS (3)
  1. BETAFERON [Concomitant]
     Active Substance: INTERFERON BETA-1B
     Indication: MULTIPLE SCLEROSIS
     Dates: start: 1998
  2. AUBAGIO [Suspect]
     Active Substance: TERIFLUNOMIDE
     Indication: MULTIPLE SCLEROSIS
     Route: 065
     Dates: start: 20150407, end: 20160307
  3. DOLIPRANE [Concomitant]
     Active Substance: ACETAMINOPHEN

REACTIONS (3)
  - Platelet count decreased [Not Recovered/Not Resolved]
  - Phlebectomy [Unknown]
  - Leukopenia [Not Recovered/Not Resolved]

NARRATIVE: CASE EVENT DATE: 20150921
